FAERS Safety Report 18294906 (Version 1)
Quarter: 2020Q3

REPORT INFORMATION
  Report Type: Spontaneous
  Country: US (occurrence: US)
  Receive Date: 20200922
  Receipt Date: 20200922
  Transmission Date: 20201103
  Serious: No
  Sender: FDA-Public Use
  Company Number: US-GLOBAL BLOOD THERAPEUTICS INC-US-GBT-20-01784

PATIENT
  Sex: Male

DRUGS (2)
  1. OXBRYTA [Suspect]
     Active Substance: VOXELOTOR
     Indication: PRODUCT USED FOR UNKNOWN INDICATION
     Route: 048
     Dates: start: 2020, end: 2020
  2. EXJADE [Concomitant]
     Active Substance: DEFERASIROX
     Indication: BLOOD IRON ABNORMAL

REACTIONS (5)
  - Fatigue [Unknown]
  - Asthenia [Unknown]
  - Headache [Unknown]
  - Abdominal discomfort [Unknown]
  - Therapy cessation [Unknown]

NARRATIVE: CASE EVENT DATE: 2020
